FAERS Safety Report 4751764-9 (Version None)
Quarter: 2005Q3

REPORT INFORMATION
  Report Type: 
  Country: None (occurrence: None)
  Receive Date: 20050822
  Receipt Date: 20050804
  Transmission Date: 20060218
  Serious: Yes (Life-Threatening, Hospitalization)
  Sender: FDA-Public Use
  Company Number: DSA_26873_2005

PATIENT
  Age: 80 Year
  Sex: Female

DRUGS (9)
  1. RENIVACE [Suspect]
     Dosage: 5 MG QD PO
     Route: 048
     Dates: start: 20050617
  2. TRYPTANOL [Suspect]
     Dosage: 10 MG QD PO
     Route: 048
     Dates: start: 20050801, end: 20050803
  3. AMLODIN [Concomitant]
  4. MAGMITT [Concomitant]
  5. GASTER [Concomitant]
  6. PURSENNID [Concomitant]
  7. TEGRETOL [Concomitant]
  8. CLARITHROMYCIN [Concomitant]
  9. MYSLEE [Concomitant]

REACTIONS (1)
  - AGRANULOCYTOSIS [None]
